FAERS Safety Report 13364385 (Version 1)
Quarter: 2017Q1

REPORT INFORMATION
  Report Type: Spontaneous
  Country: US (occurrence: US)
  Receive Date: 20170323
  Receipt Date: 20170323
  Transmission Date: 20170429
  Serious: No
  Sender: FDA-Public Use
  Company Number: US-ROCHE-1371412

PATIENT
  Age: 5 Month
  Sex: Male

DRUGS (1)
  1. XOLAIR [Suspect]
     Active Substance: OMALIZUMAB
     Indication: PRODUCT USED FOR UNKNOWN INDICATION
     Route: 063
     Dates: start: 20140319

REACTIONS (4)
  - Exposure during breast feeding [Unknown]
  - Poor quality sleep [Unknown]
  - Pyrexia [Unknown]
  - Rash erythematous [Recovering/Resolving]
